FAERS Safety Report 7466810-1 (Version None)
Quarter: 2011Q2

REPORT INFORMATION
  Report Type: 
  Country: None (occurrence: None)
  Receive Date: 20110509
  Receipt Date: 20110427
  Transmission Date: 20111010
  Serious: Yes (Hospitalization, Disabling, Other)
  Sender: FDA-Public Use
  Company Number: US-MERCK-1012USA00177

PATIENT
  Age: 53 Year
  Sex: Female
  Weight: 65 kg

DRUGS (2)
  1. BONIVA [Suspect]
     Indication: OSTEOPOROSIS
     Route: 065
     Dates: start: 20080613, end: 20080901
  2. FOSAMAX [Suspect]
     Indication: OSTEOPOROSIS
     Route: 048
     Dates: start: 20040420, end: 20080613

REACTIONS (72)
  - OSTEOMYELITIS [None]
  - HAEMORRHOIDAL HAEMORRHAGE [None]
  - VASCULITIS [None]
  - ARTHRITIS [None]
  - HEPATIC NEOPLASM MALIGNANT [None]
  - PERIODONTITIS [None]
  - DRUG HYPERSENSITIVITY [None]
  - ANKLE FRACTURE [None]
  - ROAD TRAFFIC ACCIDENT [None]
  - BONE FORMATION INCREASED [None]
  - NERVE INJURY [None]
  - ORAL TORUS [None]
  - SINUSITIS [None]
  - OSTEOARTHRITIS [None]
  - HYPOGLYCAEMIA [None]
  - GINGIVAL SWELLING [None]
  - DEVICE FAILURE [None]
  - CORONARY ARTERY DISEASE [None]
  - POLYP COLORECTAL [None]
  - OSTEONECROSIS OF JAW [None]
  - JAW DISORDER [None]
  - HYPERSENSITIVITY [None]
  - HIATUS HERNIA [None]
  - OTITIS MEDIA [None]
  - LYMPHADENITIS [None]
  - TOOTH ABSCESS [None]
  - WHIPLASH INJURY [None]
  - BRUXISM [None]
  - SYNCOPE [None]
  - SOFT TISSUE INJURY [None]
  - SCOLIOSIS [None]
  - INTERVERTEBRAL DISC PROTRUSION [None]
  - ECZEMA [None]
  - CARPAL TUNNEL SYNDROME [None]
  - HALLUCINATION [None]
  - HYPERTENSION [None]
  - TOOTH FRACTURE [None]
  - INSOMNIA [None]
  - ORAL HERPES [None]
  - CONSTIPATION [None]
  - ABDOMINAL PAIN LOWER [None]
  - APPLICATION SITE RASH [None]
  - LOSS OF CONSCIOUSNESS [None]
  - ARTHRALGIA [None]
  - MUSCLE STRAIN [None]
  - HAEMORRHOIDS [None]
  - PYREXIA [None]
  - FALL [None]
  - DENTAL CARIES [None]
  - JOINT SPRAIN [None]
  - APPLICATION SITE PAIN [None]
  - BARRETT'S OESOPHAGUS [None]
  - RHINITIS ALLERGIC [None]
  - SPINAL DISORDER [None]
  - SOFT TISSUE DISORDER [None]
  - DIVERTICULUM [None]
  - HERPES SIMPLEX [None]
  - ABDOMINAL PAIN UPPER [None]
  - MELANOCYTIC NAEVUS [None]
  - WEIGHT INCREASED [None]
  - TENDONITIS [None]
  - GINGIVAL ABSCESS [None]
  - EAR INFECTION [None]
  - CHOLECYSTITIS ACUTE [None]
  - BACK INJURY [None]
  - BONE FRAGMENTATION [None]
  - URTICARIA [None]
  - SCIATICA [None]
  - PARAESTHESIA ORAL [None]
  - URINARY TRACT INFECTION [None]
  - IMPAIRED HEALING [None]
  - DIZZINESS [None]
